FAERS Safety Report 4455940-4 (Version None)
Quarter: 2004Q3

REPORT INFORMATION
  Report Type: 
  Country: None (occurrence: None)
  Receive Date: 20040830
  Receipt Date: 20040403
  Transmission Date: 20050211
  Serious: No
  Sender: FDA-Public Use
  Company Number: 205707

PATIENT
  Sex: Female

DRUGS (2)
  1. XOLAIR [Suspect]
     Dosage: SUBCUTANEOUS
     Route: 058
     Dates: start: 20040101
  2. WARFARIN (WAFARIN SODIUM) [Concomitant]

REACTIONS (1)
  - RASH PRURITIC [None]
